FAERS Safety Report 7736841-2 (Version None)
Quarter: 2011Q3

REPORT INFORMATION
  Report Type: 
  Country: None (occurrence: None)
  Receive Date: 20110908
  Receipt Date: 20110908
  Transmission Date: 20111222
  Serious: Yes (Other)
  Sender: FDA-Public Use
  Company Number: None

PATIENT
  Age: 47 Year
  Sex: Male
  Weight: 86.182 kg

DRUGS (8)
  1. FINGOLIMOD [Suspect]
     Indication: MULTIPLE SCLEROSIS
     Dosage: 1 TAB
     Route: 048
     Dates: start: 20110330, end: 20110830
  2. LORATADINE [Concomitant]
  3. ASPIRIN [Concomitant]
     Route: 048
  4. VITAMIN D [Concomitant]
  5. FISH OIL [Concomitant]
  6. PRAMEPEXOLE [Concomitant]
  7. MOMETASONE FUROATE [Concomitant]
  8. VITAMIN B-12 [Concomitant]

REACTIONS (1)
  - VISUAL IMPAIRMENT [None]
